FAERS Safety Report 10331947 (Version 1)
Quarter: 2014Q3

REPORT INFORMATION
  Report Type: Spontaneous
  Country: CA (occurrence: None)
  Receive Date: 20140711
  Receipt Date: 20140711
  Transmission Date: 20150326
  Serious: Yes (Hospitalization)
  Sender: FDA-Public Use
  Company Number: CA-145556

PATIENT
  Sex: Male

DRUGS (1)
  1. WINRHO SDF LIQUID [Suspect]
     Active Substance: HUMAN RHO(D) IMMUNE GLOBULIN
     Indication: PROPHYLAXIS AGAINST RH ISOIMMUNISATION
     Route: 064
     Dates: start: 20140124, end: 20140124

REACTIONS (4)
  - Respiratory tract infection [None]
  - Maternal drugs affecting foetus [None]
  - Transient tachypnoea of the newborn [None]
  - Jaundice neonatal [None]

NARRATIVE: CASE EVENT DATE: 201404
